FAERS Safety Report 5198129-6 (Version None)
Quarter: 2007Q1

REPORT INFORMATION
  Report Type: 
  Country: None (occurrence: None)
  Receive Date: 20070104
  Receipt Date: 20061227
  Transmission Date: 20070707
  Serious: Yes (Other)
  Sender: FDA-Public Use
  Company Number: DE-ROCHE-469951

PATIENT
  Age: 24 Year
  Sex: Female

DRUGS (2)
  1. ROACCUTAN [Suspect]
     Indication: ACNE
     Route: 048
     Dates: start: 20060905
  2. TETRACYCLINE [Interacting]
     Indication: ACNE
     Route: 065
     Dates: end: 20060815

REACTIONS (5)
  - BENIGN INTRACRANIAL HYPERTENSION [None]
  - DRUG INTERACTION [None]
  - HEADACHE [None]
  - SICCA SYNDROME [None]
  - VISION BLURRED [None]
